FAERS Safety Report 16560407 (Version 2)
Quarter: 2020Q2

REPORT INFORMATION
  Report Type: Spontaneous
  Country: US (occurrence: US)
  Receive Date: 20190711
  Receipt Date: 20200410
  Transmission Date: 20200713
  Serious: Yes (Other)
  Sender: FDA-Public Use
  Company Number: US-SA-2019SA183587

PATIENT
  Age: 81 Year
  Sex: Female

DRUGS (1)
  1. LANTUS SOLOSTAR [Suspect]
     Active Substance: INSULIN GLARGINE
     Dosage: 22 U, HS
     Route: 065
     Dates: start: 201903

REACTIONS (2)
  - Feeling abnormal [Unknown]
  - Surgery [Unknown]
